FAERS Safety Report 9328785 (Version 1)
Quarter: 2013Q2

REPORT INFORMATION
  Report Type: Spontaneous
  Country: ES (occurrence: ES)
  Receive Date: 20130604
  Receipt Date: 20130604
  Transmission Date: 20140414
  Serious: Yes (Life-Threatening, Hospitalization, Other)
  Sender: FDA-Public Use
  Company Number: ES-BRISTOL-MYERS SQUIBB COMPANY-13996723

PATIENT
  Age: 57 Year
  Sex: Male

DRUGS (3)
  1. ABILIFY TABS 10 MG [Suspect]
     Indication: DEMENTIA
     Route: 048
     Dates: start: 200701, end: 20070731
  2. IMIPRAMINE [Interacting]
     Route: 048
     Dates: start: 20070701, end: 20070729
  3. IDALPREM [Concomitant]

REACTIONS (7)
  - Coma [Not Recovered/Not Resolved]
  - Hypertension [Not Recovered/Not Resolved]
  - Hyperhidrosis [Not Recovered/Not Resolved]
  - Tremor [Not Recovered/Not Resolved]
  - Neuroleptic malignant syndrome [Not Recovered/Not Resolved]
  - Hyperthermia [Not Recovered/Not Resolved]
  - Drug interaction [Unknown]
